FAERS Safety Report 9881752 (Version 1)
Quarter: 2014Q1

REPORT INFORMATION
  Report Type: Spontaneous
  Country: JP (occurrence: JP)
  Receive Date: 20140207
  Receipt Date: 20140207
  Transmission Date: 20141002
  Serious: Yes (Hospitalization)
  Sender: FDA-Public Use
  Company Number: JP-AMGEN-JPNSP2014008750

PATIENT
  Sex: 0

DRUGS (1)
  1. PRALIA [Suspect]
     Indication: OSTEOPOROSIS
     Dosage: ONCE
     Route: 065
     Dates: start: 20130802

REACTIONS (1)
  - White blood cell count decreased [Recovered/Resolved]
